FAERS Safety Report 10142881 (Version 2)
Quarter: 2014Q4

REPORT INFORMATION
  Report Type: Spontaneous
  Country: US (occurrence: US)
  Receive Date: 20140430
  Receipt Date: 20141014
  Transmission Date: 20150528
  Serious: Yes (Hospitalization, Other)
  Sender: FDA-Public Use
  Company Number: US-BAYER-2014-062589

PATIENT
  Age: 25 Year
  Sex: Female
  Weight: 85.71 kg

DRUGS (7)
  1. AMOXICILLIN. [Concomitant]
     Active Substance: AMOXICILLIN
     Dosage: UNK UNK, PRN
  2. ASCORBIC ACID. [Concomitant]
     Active Substance: ASCORBIC ACID
     Dosage: UNK UNK, PRN
  3. ACETAMINOPHEN W/OXYCODONE [Concomitant]
     Active Substance: ACETAMINOPHEN\OXYCODONE HYDROCHLORIDE
  4. IBUPROFEN. [Concomitant]
     Active Substance: IBUPROFEN
  5. OCELLA [Suspect]
     Active Substance: DROSPIRENONE\ETHINYL ESTRADIOL
     Dosage: UNK
     Dates: start: 200808, end: 201012
  6. BUTALBITAL [Concomitant]
     Active Substance: BUTALBITAL
  7. CYCLOBENZAPRINE [Concomitant]
     Active Substance: CYCLOBENZAPRINE

REACTIONS (16)
  - Injury [None]
  - Neck pain [None]
  - Speech disorder [None]
  - Nausea [None]
  - Loss of consciousness [None]
  - General physical health deterioration [None]
  - Seizure [None]
  - Thrombosis [None]
  - Anxiety [None]
  - Visual impairment [None]
  - Pain [None]
  - Mental status changes [None]
  - Cerebrovascular accident [None]
  - Emotional distress [None]
  - Cognitive disorder [None]
  - Blindness [None]

NARRATIVE: CASE EVENT DATE: 201012
